FAERS Safety Report 4475948-2 (Version None)
Quarter: 2004Q3

REPORT INFORMATION
  Report Type: 
  Country: None (occurrence: None)
  Receive Date: 20040923
  Receipt Date: 20040712
  Transmission Date: 20050211
  Serious: No
  Sender: FDA-Public Use
  Company Number: USA040772357

PATIENT
  Sex: Female

DRUGS (1)
  1. FORTEO [Suspect]
     Indication: BACK DISORDER
     Dates: start: 20040401

REACTIONS (2)
  - OEDEMA PERIPHERAL [None]
  - SWELLING [None]
